FAERS Safety Report 9298528 (Version 1)
Quarter: 2013Q2

REPORT INFORMATION
  Report Type: Spontaneous
  Country: GB (occurrence: GB)
  Receive Date: 20130520
  Receipt Date: 20130520
  Transmission Date: 20140414
  Serious: Yes (Other)
  Sender: FDA-Public Use
  Company Number: GB-BAXTER-2013BAX017938

PATIENT
  Sex: 0

DRUGS (1)
  1. TISSEEL READY TO USE SOLUTION FOR SEALANT [Suspect]
     Indication: DURAL TEAR
     Route: 065
     Dates: start: 20130509

REACTIONS (3)
  - Pain [Unknown]
  - Paralysis [Unknown]
  - Quadriplegia [None]
